FAERS Safety Report 4682818-3 (Version None)
Quarter: 2005Q2

REPORT INFORMATION
  Report Type: 
  Country: None (occurrence: None)
  Receive Date: 20050602
  Receipt Date: 20050421
  Transmission Date: 20051028
  Serious: No
  Sender: FDA-Public Use
  Company Number: USA050496371

PATIENT
  Age: 47 Year
  Sex: Female
  Weight: 100 kg

DRUGS (6)
  1. CYMBALTA [Suspect]
     Indication: DEPRESSION
     Dosage: 60 MG AT BEDTIME
     Dates: start: 20050107
  2. SYNTHROID [Concomitant]
  3. CALCITRIOL [Concomitant]
  4. ACETAMINOPHEN W/HYDROCODONE [Concomitant]
  5. ATENOLOL [Concomitant]
  6. NEXIUM [Concomitant]

REACTIONS (10)
  - DIARRHOEA [None]
  - DIZZINESS [None]
  - FEELING JITTERY [None]
  - HAEMORRHOIDS [None]
  - HYPERHIDROSIS [None]
  - MALAISE [None]
  - NAUSEA [None]
  - PRURITUS [None]
  - RECTAL HAEMORRHAGE [None]
  - VERTIGO [None]
